FAERS Safety Report 7519873-9 (Version None)
Quarter: 2011Q2

REPORT INFORMATION
  Report Type: 
  Country: None (occurrence: None)
  Receive Date: 20110602
  Receipt Date: 20110526
  Transmission Date: 20111010
  Serious: Yes (Other)
  Sender: FDA-Public Use
  Company Number: US-PFIZER INC-2011115096

PATIENT
  Sex: Female

DRUGS (2)
  1. DILANTIN-125 [Suspect]
     Dosage: 50 MG, UNK
  2. DILANTIN-125 [Suspect]
     Dosage: 360 MG, UNK

REACTIONS (2)
  - NAUSEA [None]
  - TOXICITY TO VARIOUS AGENTS [None]
